FAERS Safety Report 18036113 (Version 1)
Quarter: 2020Q3

REPORT INFORMATION
  Report Type: Spontaneous
  Country: US (occurrence: US)
  Receive Date: 20200717
  Receipt Date: 20200717
  Transmission Date: 20201103
  Serious: No
  Sender: FDA-Public Use
  Company Number: US-AUROBINDO-AUR-APL-2020-013611

PATIENT
  Age: 74 Year
  Sex: Male
  Weight: 77.1 kg

DRUGS (2)
  1. VALACYCLOVIR HYDROCHLORIDE TABLETS 1G [Suspect]
     Active Substance: VALACYCLOVIR HYDROCHLORIDE
     Indication: HERPES ZOSTER
     Dosage: 1 DOSAGE FORM, 3 TIMES A DAY
     Route: 065
     Dates: start: 20200306
  2. LEVOXYL [Concomitant]
     Active Substance: LEVOTHYROXINE SODIUM
     Indication: PRODUCT USED FOR UNKNOWN INDICATION
     Dosage: UNK
     Route: 065

REACTIONS (8)
  - Product physical issue [Unknown]
  - Foreign body in throat [Unknown]
  - Product size issue [Unknown]
  - Choking sensation [Unknown]
  - Product coating issue [Unknown]
  - Dyspepsia [Unknown]
  - Product use complaint [Unknown]
  - Gastric pH decreased [Unknown]

NARRATIVE: CASE EVENT DATE: 20200306
